FAERS Safety Report 15952345 (Version 1)
Quarter: 2019Q1

REPORT INFORMATION
  Report Type: Spontaneous
  Country: US (occurrence: US)
  Receive Date: 20190212
  Receipt Date: 20190212
  Transmission Date: 20190417
  Serious: No
  Sender: FDA-Public Use
  Company Number: US-PFIZER INC-2018414737

PATIENT
  Age: 48 Year
  Sex: Female

DRUGS (1)
  1. IBRANCE [Suspect]
     Active Substance: PALBOCICLIB
     Dosage: 125 MG, CYCLIC [ONE CAP BY MOUTH DAILY X21 DAYS THEN 7 DAYS OFF]
     Route: 048

REACTIONS (2)
  - Product dose omission [Unknown]
  - Neoplasm progression [Unknown]
